FAERS Safety Report 21777793 (Version 25)
Quarter: 2023Q4

REPORT INFORMATION
  Report Type: Report from Study
  Country: CN (occurrence: None)
  Receive Date: 20221226
  Receipt Date: 20231110
  Transmission Date: 20240110
  Serious: Yes (Hospitalization)
  Sender: FDA-Public Use
  Company Number: CN-ROCHE-3249131

PATIENT
  Age: 75 Year
  Sex: Male
  Weight: 50 kg

DRUGS (12)
  1. ATEZOLIZUMAB [Suspect]
     Active Substance: ATEZOLIZUMAB
     Indication: Oesophageal squamous cell carcinoma
     Dosage: START DATE OF MOST RECENT DOSE OF STUDY DRUG PRIOR TO AE/SAE 13/OCT/2022
     Route: 041
     Dates: start: 20221013
  2. PLACEBO [Suspect]
     Active Substance: UNSPECIFIED INGREDIENT
     Indication: Oesophageal squamous cell carcinoma
     Dosage: START DATE OF MOST RECENT DOSE OF STUDY DRUG PRIOR TO SAE 13/OCT/2022
     Route: 042
     Dates: start: 20221013
  3. DIPHENHYDRAMINE HYDROCHLORIDE [Concomitant]
     Active Substance: DIPHENHYDRAMINE HYDROCHLORIDE
     Indication: Pruritus
     Dates: start: 20230201, end: 20230201
  4. ERTAPENEM SODIUM [Concomitant]
     Active Substance: ERTAPENEM SODIUM
     Indication: Pneumonia
     Route: 042
     Dates: start: 20230328, end: 20230404
  5. DOXOFYLLINE [Concomitant]
     Active Substance: DOXOFYLLINE
     Indication: Pneumonia
     Route: 048
     Dates: start: 20230325
  6. FUROSEMIDE [Concomitant]
     Active Substance: FUROSEMIDE
     Indication: Cardiac failure
     Dates: start: 20220718
  7. SPIRONOLACTONE [Concomitant]
     Active Substance: SPIRONOLACTONE
     Indication: Cardiac failure
     Dates: start: 20220718
  8. SACUBITRIL\VALSARTAN [Concomitant]
     Active Substance: SACUBITRIL\VALSARTAN
     Indication: Cardiac failure
     Dates: start: 20220718
  9. AMBROXOL HYDROCHLORIDE [Concomitant]
     Active Substance: AMBROXOL HYDROCHLORIDE
     Indication: Pneumonia
     Route: 048
     Dates: start: 20230329, end: 20230417
  10. LEVOTHYROXINE SODIUM [Concomitant]
     Active Substance: LEVOTHYROXINE SODIUM
     Indication: Hypothyroidism
     Dates: start: 20230330
  11. RECOMBINANT HUMAN GRANULOCYTE COLONY STIMULATING FACTOR (UNK INGREDIEN [Concomitant]
     Indication: White blood cell count decreased
     Dates: start: 20230718, end: 20230718
  12. RECOMBINANT HUMAN GRANULOCYTE COLONY STIMULATING FACTOR (UNK INGREDIEN [Concomitant]
     Indication: Neutrophil count decreased
     Dates: start: 20230816, end: 20230816

REACTIONS (1)
  - Platelet count decreased [Recovering/Resolving]

NARRATIVE: CASE EVENT DATE: 20221114
